FAERS Safety Report 4937107-6 (Version None)
Quarter: 2006Q1

REPORT INFORMATION
  Report Type: 
  Country: None (occurrence: None)
  Receive Date: 20060307
  Receipt Date: 20060307
  Transmission Date: 20060701
  Serious: Yes (Death, Hospitalization)
  Sender: FDA-Public Use
  Company Number: None

PATIENT
  Age: 74 Year
  Sex: Male
  Weight: 70 kg

DRUGS (4)
  1. ETODOLAC [Suspect]
     Indication: PAIN
     Dosage: (THERAPY DATES: CHRONIC - STOPPED ~ 1 WK PRIOR TO ADM)
  2. ASPIRIN [Suspect]
     Indication: CORONARY ARTERY DISEASE
     Dosage: 325MG DAILY
  3. PROPRANOLOL / HCTZ [Concomitant]
  4. TYLENOL W/ CODEINE NO. 3 [Concomitant]

REACTIONS (6)
  - GASTRIC ULCER HAEMORRHAGE [None]
  - MELAENA [None]
  - METASTASES TO BONE [None]
  - METASTASES TO CENTRAL NERVOUS SYSTEM [None]
  - SYNCOPE [None]
  - THROMBOSIS [None]
